FAERS Safety Report 6233467-7 (Version None)
Quarter: 2009Q2

REPORT INFORMATION
  Report Type: 
  Country: None (occurrence: None)
  Receive Date: 20090617
  Receipt Date: 20090610
  Transmission Date: 20091009
  Serious: Yes (Other)
  Sender: FDA-Public Use
  Company Number: US-ELI_LILLY_AND_COMPANY-US200906002482

PATIENT
  Sex: Female

DRUGS (3)
  1. BYETTA [Suspect]
     Indication: DIABETES MELLITUS
     Dosage: 5 UG, 2/D
     Route: 058
     Dates: start: 20090417, end: 20090608
  2. GLUCOPHAGE [Concomitant]
     Dosage: 500 MG, UNKNOWN
     Route: 065
  3. FOSAMAX [Concomitant]
     Dosage: 70 MG, DAILY (1/D)
     Route: 065

REACTIONS (1)
  - PANCREATITIS [None]
